FAERS Safety Report 8180105-2 (Version None)
Quarter: 2012Q1

REPORT INFORMATION
  Report Type: 
  Country: None (occurrence: None)
  Receive Date: 20120302
  Receipt Date: 20120302
  Transmission Date: 20120608
  Serious: Yes (Other)
  Sender: FDA-Public Use
  Company Number: None

PATIENT
  Sex: Female
  Weight: 54.431 kg

DRUGS (1)
  1. AVELOX [Suspect]
     Indication: LOWER RESPIRATORY TRACT INFECTION
     Route: 048

REACTIONS (6)
  - DIZZINESS [None]
  - DISORIENTATION [None]
  - BEDRIDDEN [None]
  - VOMITING [None]
  - NAUSEA [None]
  - IMPAIRED DRIVING ABILITY [None]
